FAERS Safety Report 17598317 (Version 1)
Quarter: 2020Q1

REPORT INFORMATION
  Report Type: Spontaneous
  Country: US (occurrence: US)
  Receive Date: 20200328
  Receipt Date: 20200328
  Transmission Date: 20200409
  Serious: Yes (Life-Threatening, Other)
  Sender: FDA-Public Use
  Company Number: None

PATIENT
  Age: 71 Year
  Sex: Female
  Weight: 108 kg

DRUGS (33)
  1. AMITRIPTYLINE [Concomitant]
     Active Substance: AMITRIPTYLINE
  2. NICOTINAMIDE RIBOSIDE. [Concomitant]
     Active Substance: NICOTINAMIDE RIBOSIDE
  3. EXEMESTANE. [Concomitant]
     Active Substance: EXEMESTANE
  4. METHYLCARBAMOL [Concomitant]
  5. LEVOTHYROXINE. [Concomitant]
     Active Substance: LEVOTHYROXINE
  6. TRANS-PTEROSTILBENE [Concomitant]
  7. PTEROCARPUS MARSUPIUM [Concomitant]
  8. PATANOL [Concomitant]
     Active Substance: OLOPATADINE HYDROCHLORIDE
  9. CINNAMON. [Concomitant]
     Active Substance: CINNAMON
  10. VITAMIN B12 [Concomitant]
     Active Substance: CYANOCOBALAMIN
  11. MULTIPLE VIT AND MIN [Concomitant]
  12. NIASPAN [Suspect]
     Active Substance: NIACIN
     Indication: BLOOD CHOLESTEROL INCREASED
     Dosage: ?          QUANTITY:1 CAPSULE(S);?
     Route: 048
     Dates: start: 20200308, end: 20200308
  13. LUMIGAN [Concomitant]
     Active Substance: BIMATOPROST
  14. FLUTICASONE. [Concomitant]
     Active Substance: FLUTICASONE
  15. NAPROXEN. [Concomitant]
     Active Substance: NAPROXEN
  16. VIT, MINERAL [Concomitant]
  17. MAGPOTASASPAR [Concomitant]
  18. AMOXICILLIN. [Concomitant]
     Active Substance: AMOXICILLIN
  19. LASIX [Concomitant]
     Active Substance: FUROSEMIDE
  20. AMLODIPINE [Concomitant]
     Active Substance: AMLODIPINE BESYLATE
  21. NIACIN. [Concomitant]
     Active Substance: NIACIN
  22. SILBINOL [Concomitant]
  23. LOSARTAN. [Concomitant]
     Active Substance: LOSARTAN
  24. FLEXERIL [Concomitant]
     Active Substance: CYCLOBENZAPRINE HYDROCHLORIDE
  25. MAG CITRATE [Concomitant]
  26. MAGNESIUM OXIDE. [Concomitant]
     Active Substance: MAGNESIUM OXIDE
  27. DIMETHYLRESVERATROL [Concomitant]
  28. ORAL STEROID [Concomitant]
  29. POTASSIUM [Concomitant]
     Active Substance: POTASSIUM
  30. MONTELUKAST [Concomitant]
     Active Substance: MONTELUKAST SODIUM
  31. VITAMIN D3 [Concomitant]
     Active Substance: CHOLECALCIFEROL
  32. RESTASIS [Concomitant]
     Active Substance: CYCLOSPORINE
  33. ZITHROMAX [Concomitant]
     Active Substance: AZITHROMYCIN DIHYDRATE

REACTIONS (6)
  - Dyspnoea [None]
  - Erythema [None]
  - Ear pruritus [None]
  - Wheezing [None]
  - Urticaria [None]
  - Pruritus [None]

NARRATIVE: CASE EVENT DATE: 20200308
